FAERS Safety Report 6991786-0 (Version None)
Quarter: 2010Q3

REPORT INFORMATION
  Report Type: 
  Country: None (occurrence: None)
  Receive Date: 20100917
  Receipt Date: 20100906
  Transmission Date: 20110219
  Serious: Yes (Other)
  Sender: FDA-Public Use
  Company Number: US-PFIZER INC-2010104849

PATIENT
  Sex: Female

DRUGS (8)
  1. LYRICA [Suspect]
     Indication: FIBROMYALGIA
     Dosage: 300 MG, 1X/DAY
     Dates: start: 20070101, end: 20100101
  2. ACTOS [Suspect]
     Dosage: UNK
  3. CYMBALTA [Concomitant]
     Dosage: 20 MG, 1X/DAY
     Dates: start: 20070101, end: 20100101
  4. NOVOLOG MIX 70/30 [Concomitant]
     Dosage: UNK
     Dates: start: 20100101
  5. METFORMIN HYDROCHLORIDE/SITAGLIPTIN [Concomitant]
     Dosage: UNK
  6. SYNTHROID [Concomitant]
     Dosage: 135 UG, UNK
  7. LIPITOR [Concomitant]
     Dosage: 20 MG, 1X/DAY
  8. LOVAZA [Concomitant]
     Dosage: 2 G, 2X/DAY
     Route: 048

REACTIONS (1)
  - FLUID RETENTION [None]
